FAERS Safety Report 6592926-8 (Version None)
Quarter: 2010Q1

REPORT INFORMATION
  Report Type: 
  Country: None (occurrence: None)
  Receive Date: 20100222
  Receipt Date: 20100205
  Transmission Date: 20100710
  Serious: Yes (Hospitalization, Other)
  Sender: FDA-Public Use
  Company Number: US-BAYER-201013474NA

PATIENT
  Age: 68 Year
  Sex: Female

DRUGS (1)
  1. BETASERON [Suspect]
     Indication: MULTIPLE SCLEROSIS
     Dosage: TOTAL DAILY DOSE: 8 MIU
     Route: 058
     Dates: start: 20090804

REACTIONS (5)
  - CARDIAC ENZYMES INCREASED [None]
  - LUNG NEOPLASM MALIGNANT [None]
  - METASTASES TO LIVER [None]
  - MYOCARDIAL INFARCTION [None]
  - NEPHROLITHIASIS [None]
